FAERS Safety Report 21916595 (Version 1)
Quarter: 2023Q1

REPORT INFORMATION
  Report Type: Spontaneous
  Country: FI (occurrence: FI)
  Receive Date: 20230126
  Receipt Date: 20230126
  Transmission Date: 20230417
  Serious: Yes (Hospitalization)
  Sender: FDA-Public Use
  Company Number: None

PATIENT
  Age: 21 Year
  Sex: Female

DRUGS (1)
  1. XELJANZ [Suspect]
     Active Substance: TOFACITINIB CITRATE
     Indication: Juvenile idiopathic arthritis
     Dosage: 5 MG, DAILY
     Route: 048
     Dates: start: 2019, end: 2021

REACTIONS (14)
  - Vocal cord disorder [Recovered/Resolved with Sequelae]
  - Cough [Recovered/Resolved with Sequelae]
  - Dyspnoea [Recovered/Resolved with Sequelae]
  - Herpes oesophagitis [Recovered/Resolved with Sequelae]
  - Chest pain [Recovered/Resolved with Sequelae]
  - Psoriasis [Recovered/Resolved with Sequelae]
  - Haemoptysis [Recovered/Resolved with Sequelae]
  - Vocal cord inflammation [Recovered/Resolved with Sequelae]
  - Tracheal scarring [Recovered/Resolved with Sequelae]
  - Excessive dynamic airway collapse [Recovered/Resolved with Sequelae]
  - Herpes pharyngitis [Recovered/Resolved with Sequelae]
  - Tracheitis [Recovered/Resolved with Sequelae]
  - Staphylococcal infection [Recovered/Resolved with Sequelae]
  - Laryngitis [Recovered/Resolved with Sequelae]

NARRATIVE: CASE EVENT DATE: 20211001
